FAERS Safety Report 8626682 (Version 3)
Quarter: 2012Q4

REPORT INFORMATION
  Report Type: Report from Study
  Country: JP (occurrence: JP)
  Receive Date: 20120620
  Receipt Date: 20121015
  Transmission Date: 20130627
  Serious: Yes (Hospitalization)
  Sender: FDA-Public Use
  Company Number: JP-CELGENEUS-087-50794-12062594

PATIENT
  Age: 75 Year
  Sex: Male
  Weight: 36 kg

DRUGS (11)
  1. VIDAZA [Suspect]
     Indication: MDS
     Dosage: 75 Milligram
     Route: 041
     Dates: start: 20111004, end: 20111007
  2. VIDAZA [Suspect]
     Dosage: 75 Milligram
     Route: 041
     Dates: start: 20111107, end: 20111111
  3. VIDAZA [Suspect]
     Dosage: 75 Milligram
     Route: 041
     Dates: start: 20111114, end: 20111115
  4. PRIMOBOLAN [Concomitant]
     Indication: DRUG USE FOR UNKNOWN INDICATION
     Route: 065
     Dates: start: 20111004
  5. GLAKAY [Concomitant]
     Indication: DRUG USE FOR UNKNOWN INDICATION
     Route: 065
     Dates: start: 20111004
  6. OMEPRAL [Concomitant]
     Indication: DRUG USE FOR UNKNOWN INDICATION
     Route: 065
     Dates: start: 20111004
  7. PREDONINE [Concomitant]
     Indication: DRUG USE FOR UNKNOWN INDICATION
     Route: 065
     Dates: start: 20111004
  8. METHYLCOBAL [Concomitant]
     Indication: DRUG USE FOR UNKNOWN INDICATION
     Route: 065
     Dates: start: 20111004
  9. MAGMITT [Concomitant]
     Indication: DRUG USE FOR UNKNOWN INDICATION
     Route: 065
     Dates: start: 20111004
  10. BAKTAR [Concomitant]
     Indication: DRUG USE FOR UNKNOWN INDICATION
     Route: 065
     Dates: start: 20111004
  11. FOSAMAC [Concomitant]
     Indication: DRUG USE FOR UNKNOWN INDICATION
     Dosage: 35 Milligram
     Route: 065
     Dates: start: 20111004

REACTIONS (5)
  - Pneumonia [Recovered/Resolved]
  - White blood cell count decreased [Recovering/Resolving]
  - Neutrophil count decreased [Recovering/Resolving]
  - Platelet count decreased [Recovering/Resolving]
  - Anaemia [Recovering/Resolving]
